FAERS Safety Report 9146925 (Version 1)
Quarter: 2013Q1

REPORT INFORMATION
  Report Type: Spontaneous
  Country: US (occurrence: None)
  Receive Date: 20130228
  Receipt Date: 20130228
  Transmission Date: 20140127
  Serious: Yes (Life-Threatening)
  Sender: FDA-Public Use
  Company Number: None

PATIENT
  Age: 62 Year
  Sex: Female
  Weight: 57.61 kg

DRUGS (1)
  1. ANASTRAZOLE TABLETS 1MG [Suspect]
     Dosage: 1 MG DAILY DAILY ORAL
     Route: 048
     Dates: start: 20120308, end: 20120616

REACTIONS (5)
  - Fatigue [None]
  - Thinking abnormal [None]
  - Arthralgia [None]
  - Erythema nodosum [None]
  - Headache [None]
